FAERS Safety Report 18550896 (Version 1)
Quarter: 2020Q4

REPORT INFORMATION
  Report Type: Spontaneous
  Country: US (occurrence: US)
  Receive Date: 20201126
  Receipt Date: 20201126
  Transmission Date: 20210114
  Serious: No
  Sender: FDA-Public Use
  Company Number: US-SA-2019SA173312

PATIENT

DRUGS (2)
  1. NITROFURANTIN [Concomitant]
     Active Substance: NITROFURANTOIN
  2. DUPIXENT [Suspect]
     Active Substance: DUPILUMAB
     Indication: UPPER RESPIRATORY TRACT INFECTION
     Dosage: UNK
     Route: 058
     Dates: start: 201805

REACTIONS (7)
  - Sleep disorder [Not Recovered/Not Resolved]
  - Product dose omission issue [Unknown]
  - Dry skin [Not Recovered/Not Resolved]
  - Product use in unapproved indication [Unknown]
  - Condition aggravated [Not Recovered/Not Resolved]
  - Discomfort [Not Recovered/Not Resolved]
  - Rash [Not Recovered/Not Resolved]
